FAERS Safety Report 6968165-5 (Version None)
Quarter: 2010Q3

REPORT INFORMATION
  Report Type: 
  Country: None (occurrence: None)
  Receive Date: 20100907
  Receipt Date: 20100830
  Transmission Date: 20110219
  Serious: Yes (Death, Hospitalization, Other)
  Sender: FDA-Public Use
  Company Number: FR-ELI_LILLY_AND_COMPANY-FR201005000778

PATIENT
  Sex: Male
  Weight: 58 kg

DRUGS (2)
  1. GEMCITABINE HCL [Suspect]
     Indication: NON-SMALL CELL LUNG CANCER
     Dosage: 1250 MG/M2, ON DAYS 1 + 8 OF EACH CYCLE
     Route: 042
     Dates: start: 20070419, end: 20070710
  2. CISPLATIN [Suspect]
     Indication: NON-SMALL CELL LUNG CANCER
     Dosage: 80 MG/M2, ON DAY 1 OF EACH CYCLE
     Route: 042
     Dates: start: 20070419, end: 20070704

REACTIONS (6)
  - ACUTE MYELOID LEUKAEMIA [None]
  - ACUTE RESPIRATORY DISTRESS SYNDROME [None]
  - ARTHRALGIA [None]
  - DEATH [None]
  - PNEUMONIA [None]
  - TUBERCULOSIS [None]
